FAERS Safety Report 6051584-1 (Version None)
Quarter: 2009Q1

REPORT INFORMATION
  Report Type: 
  Country: None (occurrence: None)
  Receive Date: 20090126
  Receipt Date: 20090120
  Transmission Date: 20090719
  Serious: Yes (Other)
  Sender: FDA-Public Use
  Company Number: D0060234A

PATIENT
  Age: 51 Year
  Sex: Male
  Weight: 120 kg

DRUGS (3)
  1. AVANDAMET [Suspect]
     Dosage: 1002MG TWICE PER DAY
     Route: 048
     Dates: start: 20050101, end: 20090106
  2. LISINOPRIL [Concomitant]
     Indication: ESSENTIAL HYPERTENSION
     Route: 048
  3. MICARDIS [Concomitant]
     Indication: HYPERTENSION
     Dosage: 80MG PER DAY
     Route: 048

REACTIONS (4)
  - ASTHENIA [None]
  - DYSPNOEA [None]
  - HAEMOLYTIC ANAEMIA [None]
  - JAUNDICE [None]
